FAERS Safety Report 8974104 (Version 1)
Quarter: 2012Q4

REPORT INFORMATION
  Report Type: Spontaneous
  Country: US (occurrence: None)
  Receive Date: 20121217
  Receipt Date: 20121217
  Transmission Date: 20130627
  Serious: Yes (Other)
  Sender: FDA-Public Use
  Company Number: None

PATIENT
  Sex: Male
  Weight: 132.9 kg

DRUGS (1)
  1. ENOXAPARIN [Suspect]
     Indication: DVT PROPHYLAXIS
     Dosage: 40mg; Twice/day; 057
     Dates: start: 20110426, end: 20110428

REACTIONS (3)
  - Atrial fibrillation [None]
  - Stress [None]
  - Drug dose omission [None]
